FAERS Safety Report 7156655-4 (Version None)
Quarter: 2010Q4

REPORT INFORMATION
  Report Type: 
  Country: None (occurrence: None)
  Receive Date: 20101214
  Receipt Date: 20100416
  Transmission Date: 20110411
  Serious: No
  Sender: FDA-Public Use
  Company Number: US-ASTRAZENECA-2003UW16993

PATIENT
  Age: 57 Year
  Sex: Male
  Weight: 95.3 kg

DRUGS (5)
  1. CRESTOR [Suspect]
     Indication: BLOOD CHOLESTEROL INCREASED
     Route: 048
  2. LISINOPRIL [Concomitant]
  3. CEPHALEXIN [Concomitant]
  4. SINGULAIR [Concomitant]
  5. VICODIN [Concomitant]

REACTIONS (2)
  - HICCUPS [None]
  - TYPE 2 DIABETES MELLITUS [None]
